FAERS Safety Report 5779171-0 (Version None)
Quarter: 2008Q2

REPORT INFORMATION
  Report Type: 
  Country: None (occurrence: None)
  Receive Date: 20080617
  Receipt Date: 20080605
  Transmission Date: 20081010
  Serious: Yes (Hospitalization, Other)
  Sender: FDA-Public Use
  Company Number: 2008001302

PATIENT
  Age: 44 Year
  Sex: Female

DRUGS (1)
  1. TARCEVA [Suspect]
     Indication: LUNG ADENOCARCINOMA
     Dosage: (150 MG, QD), ORAL
     Route: 048
     Dates: start: 20070301

REACTIONS (8)
  - CONVULSION [None]
  - DISORIENTATION [None]
  - DIZZINESS [None]
  - DRY SKIN [None]
  - FATIGUE [None]
  - FLUSHING [None]
  - MEMORY IMPAIRMENT [None]
  - RASH [None]
